FAERS Safety Report 22013164 (Version 2)
Quarter: 2023Q1

REPORT INFORMATION
  Report Type: Spontaneous
  Country: GB (occurrence: GB)
  Receive Date: 20230220
  Receipt Date: 20230308
  Transmission Date: 20230418
  Serious: Yes (Other)
  Sender: FDA-Public Use
  Company Number: None

PATIENT
  Age: 22 Year
  Sex: Male
  Weight: 119 kg

DRUGS (6)
  1. DOXYCYCLINE [Suspect]
     Active Substance: DOXYCYCLINE
     Indication: Acute sinusitis
     Dosage: 200 MILLIGRAM, QD (100MG OD AFER INITIAL DOSE OF 200MG OD ON 1ST DAY. 7 DAYS COURSE)
     Route: 048
     Dates: start: 20230127, end: 20230202
  2. DOXYCYCLINE [Suspect]
     Active Substance: DOXYCYCLINE
     Dosage: 100 MILLIGRAM, QD (100MG OD AFER INITIAL DOSE OF 200MG OD ON 1ST DAY. 7 DAYS COURSE)
     Route: 048
     Dates: start: 20230128, end: 20230203
  3. AMOXICILLIN [Concomitant]
     Active Substance: AMOXICILLIN
     Indication: Ill-defined disorder
     Dosage: 1 DOSAGE FORM, TID(ONE CAPSULE TO BE TAKEN THREE TIMES A DAY FOR 14 DAYS)
     Route: 065
     Dates: start: 20230215
  4. DOXYCYCLINE [Concomitant]
     Active Substance: DOXYCYCLINE
     Indication: Ill-defined disorder
     Dosage: UNK
     Route: 048
     Dates: start: 20230127, end: 20230203
  5. PROPRANOLOL [Concomitant]
     Active Substance: PROPRANOLOL HYDROCHLORIDE
     Indication: Anxiety
     Dosage: 1 DOSAGE FORM, TID (ONE THREE TIMES DAILY AS NEEDED)
     Route: 065
     Dates: start: 20220715
  6. SERTRALINE [Concomitant]
     Active Substance: SERTRALINE HYDROCHLORIDE
     Indication: Depression
     Dosage: 1 DOSAGE FORM, QD (ONE TO BE TAKEN EACH DAY)
     Route: 065
     Dates: start: 20220715

REACTIONS (4)
  - Swollen tongue [Recovered/Resolved]
  - Retching [Unknown]
  - Nausea [Unknown]
  - Vomiting [Unknown]

NARRATIVE: CASE EVENT DATE: 20230127
